FAERS Safety Report 9448179 (Version 1)
Quarter: 2013Q3

REPORT INFORMATION
  Report Type: Spontaneous
  Country: US (occurrence: None)
  Receive Date: 20130807
  Receipt Date: 20130807
  Transmission Date: 20140515
  Serious: Yes (Life-Threatening, Hospitalization)
  Sender: FDA-Public Use
  Company Number: None

PATIENT
  Age: 51 Year
  Sex: Male
  Weight: 113.6 kg

DRUGS (2)
  1. ENTEREG [Suspect]
     Indication: GASTROINTESTINAL DISORDER
     Dosage: ENTEREG ONCE IM
     Route: 030
     Dates: start: 20130530
  2. ENTEREG [Suspect]
     Indication: ANAESTHETIC COMPLICATION
     Dosage: ENTEREG ONCE IM
     Route: 030
     Dates: start: 20130530

REACTIONS (1)
  - Myocardial infarction [None]
